FAERS Safety Report 8902022 (Version 3)
Quarter: 2014Q2

REPORT INFORMATION
  Report Type: Spontaneous
  Country: US (occurrence: US)
  Receive Date: 20121112
  Receipt Date: 20140429
  Transmission Date: 20141212
  Serious: Yes (Hospitalization, Other)
  Sender: FDA-Public Use
  Company Number: US-BAYER-2012-115857

PATIENT
  Age: 29 Year
  Sex: Female
  Weight: 114.74 kg

DRUGS (6)
  1. YAZ [Suspect]
     Dosage: UNK
     Dates: start: 20070101, end: 200910
  2. YASMIN [Suspect]
     Dosage: UNK
     Dates: start: 20070101, end: 200910
  3. OCELLA [Suspect]
     Dosage: UNK
     Dates: start: 2007, end: 2009
  4. BENADRYL [Concomitant]
     Dosage: AS NEEDED EVERY DAY
     Route: 048
  5. NASONEX [Concomitant]
     Dosage: 2 PUFFS NARE AS NEEDED EVER DAY
     Route: 045
  6. VICODIN [Concomitant]

REACTIONS (9)
  - Cholecystectomy [None]
  - Cholecystitis chronic [Recovered/Resolved]
  - Injury [None]
  - Anxiety [None]
  - Emotional distress [None]
  - General physical health deterioration [None]
  - Pain [None]
  - Anhedonia [None]
  - Pain [None]
